FAERS Safety Report 8846052 (Version 1)
Quarter: 2012Q4

REPORT INFORMATION
  Report Type: 
  Country: DE (occurrence: US)
  Receive Date: 20121017
  Receipt Date: 20121017
  Transmission Date: 20130627
  Serious: Yes (Hospitalization)
  Sender: FDA-Public Use
  Company Number: US-FRI-1000039413

PATIENT
  Age: 2 Year
  Sex: Female

DRUGS (2)
  1. MEMANTINE [Suspect]
     Route: 048
  2. DONEPEZIL [Suspect]
     Route: 048

REACTIONS (5)
  - Accidental exposure to product by child [Unknown]
  - Encephalopathy [Unknown]
  - Hallucination, visual [Unknown]
  - Agitation [Unknown]
  - Heart rate increased [Unknown]
